FAERS Safety Report 16432898 (Version 2)
Quarter: 2019Q3

REPORT INFORMATION
  Report Type: Spontaneous
  Country: US (occurrence: US)
  Receive Date: 20190614
  Receipt Date: 20190917
  Transmission Date: 20191004
  Serious: No
  Sender: FDA-Public Use
  Company Number: US-JNJFOC-20190543841

PATIENT
  Sex: Female
  Weight: 50.8 kg

DRUGS (1)
  1. ULTRAM [Suspect]
     Active Substance: TRAMADOL HYDROCHLORIDE
     Indication: PARAESTHESIA
     Route: 065

REACTIONS (3)
  - Therapy change [Unknown]
  - Therapeutic product effect incomplete [Unknown]
  - Anxiety [Unknown]
